FAERS Safety Report 5378254-7 (Version None)
Quarter: 2007Q3

REPORT INFORMATION
  Report Type: 
  Country: None (occurrence: None)
  Receive Date: 20070702
  Receipt Date: 20070625
  Transmission Date: 20080115
  Serious: Yes (Hospitalization, Other)
  Sender: FDA-Public Use
  Company Number: 163-21880-07050153

PATIENT
  Age: 58 Year
  Sex: Male

DRUGS (1)
  1. REVLIMID [Suspect]
     Indication: MULTIPLE MYELOMA
     Dosage: QD X21 DAYS Q 28DAYS, ORAL
     Route: 048
     Dates: start: 20060625

REACTIONS (4)
  - CATARACT [None]
  - FEMUR FRACTURE [None]
  - LYMPHADENITIS [None]
  - RASH GENERALISED [None]
